FAERS Safety Report 9010196 (Version 1)
Quarter: 2013Q1

REPORT INFORMATION
  Report Type: Spontaneous
  Country: US (occurrence: US)
  Receive Date: 20130110
  Receipt Date: 20130110
  Transmission Date: 20140127
  Serious: Yes (Hospitalization)
  Sender: FDA-Public Use
  Company Number: US-ELI_LILLY_AND_COMPANY-US201301000818

PATIENT
  Age: 73 Year
  Sex: Female

DRUGS (6)
  1. FORTEO [Suspect]
     Indication: OSTEOPOROSIS
     Dosage: 20 UG, QD
     Dates: start: 201109, end: 20121107
  2. FORTEO [Suspect]
     Dosage: 20 UG, QD
     Dates: start: 201212
  3. EFFEXOR [Concomitant]
     Indication: BIPOLAR DISORDER
     Dosage: UNK, QD
  4. DEPAKOTE [Concomitant]
     Indication: BIPOLAR DISORDER
     Dosage: UNK, QD
  5. ROPINIROLE [Concomitant]
     Indication: MUSCLE SPASMS
     Dosage: UNK, EACH EVENING
  6. METHOTREXATE [Concomitant]
     Indication: RHEUMATOID ARTHRITIS
     Dosage: UNK, WEEKLY (1/W)

REACTIONS (3)
  - Device failure [Unknown]
  - Incorrect storage of drug [Unknown]
  - Drug dose omission [Unknown]
